FAERS Safety Report 7145215-7 (Version None)
Quarter: 2010Q4

REPORT INFORMATION
  Report Type: 
  Country: None (occurrence: None)
  Receive Date: 20101208
  Receipt Date: 20101126
  Transmission Date: 20110411
  Serious: Yes (Other)
  Sender: FDA-Public Use
  Company Number: PHHY2010FR51748

PATIENT
  Age: 55 Year
  Sex: Male

DRUGS (2)
  1. GLEEVEC [Suspect]
     Indication: CHRONIC MYELOID LEUKAEMIA
     Dosage: 400 MG, UNK
     Dates: start: 20090201, end: 20090301
  2. GLEEVEC [Suspect]
     Dosage: 300 MG, UNK
     Dates: start: 20090401, end: 20090601

REACTIONS (1)
  - SKIN TOXICITY [None]
